FAERS Safety Report 7964815-5 (Version None)
Quarter: 2011Q4

REPORT INFORMATION
  Report Type: 
  Country: None (occurrence: None)
  Receive Date: 20111208
  Receipt Date: 20111125
  Transmission Date: 20120403
  Serious: Yes (Other)
  Sender: FDA-Public Use
  Company Number: PHFR2011GB006808

PATIENT
  Sex: Male

DRUGS (5)
  1. AMITRIPTYLINE HCL [Concomitant]
  2. CLOZARIL [Suspect]
     Indication: SCHIZOPHRENIA
     Dosage: 500 MG, QD
     Route: 048
     Dates: start: 20101202
  3. CLOZARIL [Suspect]
     Dosage: 50 MG, UNK
     Route: 048
     Dates: end: 20111125
  4. HYOSCINE [Concomitant]
  5. VALPROATE SODIUM [Concomitant]

REACTIONS (7)
  - CLUMSINESS [None]
  - PALLOR [None]
  - DYSARTHRIA [None]
  - ANTIPSYCHOTIC DRUG LEVEL ABOVE THERAPEUTIC [None]
  - UPPER LIMB FRACTURE [None]
  - SALIVARY HYPERSECRETION [None]
  - LETHARGY [None]
